FAERS Safety Report 12446679 (Version 1)
Quarter: 2016Q2

REPORT INFORMATION
  Report Type: Spontaneous
  Country: US (occurrence: US)
  Receive Date: 20160608
  Receipt Date: 20160608
  Transmission Date: 20160815
  Serious: No
  Sender: FDA-Public Use
  Company Number: US-BAYER-2016-111885

PATIENT
  Age: 82 Year
  Sex: Male
  Weight: 71.66 kg

DRUGS (1)
  1. MIRALAX [Suspect]
     Active Substance: POLYETHYLENE GLYCOL 3350
     Indication: CONSTIPATION
     Dosage: 1 DF, QD (TOOK WITH 4 OUNCES OF ORANGE JUICE)
     Route: 048
     Dates: start: 20160602

REACTIONS (1)
  - Infrequent bowel movements [Not Recovered/Not Resolved]

NARRATIVE: CASE EVENT DATE: 20160606
